FAERS Safety Report 23654032 (Version 1)
Quarter: 2024Q1

REPORT INFORMATION
  Report Type: Report from Study
  Country: LB (occurrence: LB)
  Receive Date: 20240320
  Receipt Date: 20240320
  Transmission Date: 20240410
  Serious: Yes (Hospitalization)
  Sender: FDA-Public Use
  Company Number: LB-SA-SAC20240307001314

PATIENT
  Age: 4 Year
  Sex: Male

DRUGS (1)
  1. IMIGLUCERASE [Suspect]
     Active Substance: IMIGLUCERASE
     Indication: Gaucher^s disease
     Dosage: 400 IU, QOW
     Route: 042

REACTIONS (1)
  - H1N1 influenza [Recovered/Resolved]

NARRATIVE: CASE EVENT DATE: 20230101
